FAERS Safety Report 7074802-X (Version None)
Quarter: 2010Q4

REPORT INFORMATION
  Report Type: 
  Country: None (occurrence: None)
  Receive Date: 20101029
  Receipt Date: 20101013
  Transmission Date: 20110411
  Serious: Yes (Other)
  Sender: FDA-Public Use
  Company Number: JP-AMGEN-KDC442650

PATIENT

DRUGS (29)
  1. PANITUMUMAB [Suspect]
     Indication: COLORECTAL CANCER
     Dosage: 6 MG/KG, Q2WK
     Route: 041
     Dates: start: 20100705, end: 20100823
  2. IRINOTECAN HYDROCHLORIDE [Concomitant]
     Indication: COLORECTAL CANCER
     Dosage: 160 MG, Q2WK
     Route: 041
     Dates: start: 20100705, end: 20100823
  3. IRINOTECAN HYDROCHLORIDE [Concomitant]
     Route: 041
     Dates: start: 20100705, end: 20100823
  4. FLUOROURACIL [Concomitant]
     Indication: COLORECTAL CANCER
     Dosage: 500 MG, Q2WK
     Route: 040
     Dates: start: 20100705, end: 20100823
  5. FLUOROURACIL [Concomitant]
     Dosage: 3250 MG, Q2WK
     Route: 041
     Dates: start: 20100705
  6. FLUOROURACIL [Concomitant]
     Route: 040
     Dates: start: 20100705, end: 20100823
  7. FLUOROURACIL [Concomitant]
     Route: 041
     Dates: start: 20100705, end: 20100823
  8. CALCIUM LEVOFOLINATE [Concomitant]
     Indication: COLORECTAL CANCER
     Dosage: 275 MG, Q2WK
     Route: 041
     Dates: start: 20100705, end: 20100823
  9. CALCIUM LEVOFOLINATE [Concomitant]
     Route: 041
     Dates: start: 20100705, end: 20100823
  10. ANTIHISTAMINES [Concomitant]
     Indication: PROPHYLAXIS
     Dosage: UNK UNK, UNK
     Route: 065
  11. ANTIHISTAMINES [Concomitant]
     Route: 065
  12. CORTICOSTEROIDS [Concomitant]
     Indication: PROPHYLAXIS
     Dosage: UNK UNK, UNK
     Route: 065
  13. KYTRIL [Concomitant]
     Route: 042
  14. LOXONIN [Concomitant]
     Route: 048
  15. GASTER D [Concomitant]
     Route: 048
  16. MAGNESIUM OXIDE [Concomitant]
     Dosage: UNK UNK, UNK
     Route: 048
  17. MAGNESIUM OXIDE [Concomitant]
     Route: 048
  18. BETAMETHASONE [Concomitant]
     Dosage: UNK UNK, UNK
     Route: 048
  19. BETAMETHASONE [Concomitant]
     Route: 048
  20. PETROLATUM [Concomitant]
     Dosage: UNK UNK, UNK
     Route: 062
  21. PETROLATUM [Concomitant]
     Route: 062
  22. SAHNE [Concomitant]
     Dosage: UNK UNK, UNK
     Route: 062
  23. SAHNE [Concomitant]
     Route: 062
  24. HIRUDOID SOFT [Concomitant]
     Dosage: UNK UNK, UNK
     Route: 062
  25. HIRUDOID SOFT [Concomitant]
     Route: 062
  26. DALACIN T [Concomitant]
     Dosage: UNK UNK, UNK
     Route: 062
  27. DALACIN T [Concomitant]
     Route: 062
  28. URIEF [Concomitant]
     Dosage: UNK UNK, UNK
     Route: 048
  29. URIEF [Concomitant]
     Route: 048

REACTIONS (6)
  - ARRHYTHMIA [None]
  - DERMATITIS ACNEIFORM [None]
  - GASTROINTESTINAL STOMA COMPLICATION [None]
  - HYPERKALAEMIA [None]
  - HYPOCALCAEMIA [None]
  - HYPOMAGNESAEMIA [None]
